FAERS Safety Report 10741119 (Version 2)
Quarter: 2015Q1

REPORT INFORMATION
  Report Type: Spontaneous
  Country: IT (occurrence: IT)
  Receive Date: 20150127
  Receipt Date: 20150127
  Transmission Date: 20150721
  Serious: Yes (Hospitalization)
  Sender: FDA-Public Use
  Company Number: IT-SA-2015SA005568

PATIENT
  Age: 88 Year
  Sex: Female

DRUGS (8)
  1. LORAZEPAM. [Concomitant]
     Active Substance: LORAZEPAM
     Route: 048
  2. LOSARTAN POTASSIUM AND HYDROCHLOROTHIAZIDE [Suspect]
     Active Substance: HYDROCHLOROTHIAZIDE\LOSARTAN POTASSIUM
     Indication: HYPERTENSION
     Dosage: DOSE: 1 DOSAGE UNIT DOSE:1 UNIT(S)
     Route: 048
     Dates: start: 20140101, end: 20141222
  3. APONIL [Concomitant]
     Route: 048
  4. LASIX [Suspect]
     Active Substance: FUROSEMIDE
     Indication: ANURIA
     Dosage: DOSE: 1 DOSAGE UNIT DOSE:1 UNIT(S)
     Route: 048
     Dates: start: 20140101, end: 20141222
  5. PANTOPRAZOLE [Concomitant]
     Active Substance: PANTOPRAZOLE SODIUM
     Route: 048
  6. CLEXANE [Concomitant]
     Active Substance: ENOXAPARIN SODIUM
     Route: 058
  7. TRITTICO [Concomitant]
     Active Substance: TRAZODONE HYDROCHLORIDE
     Dosage: 25 MG/ML ORAL DROPS, SOLUTION^ VIAL 30 ML
     Route: 048
  8. SAMYR [Concomitant]
     Active Substance: METHIONINE

REACTIONS (5)
  - Dyspnoea [Unknown]
  - Anuria [Unknown]
  - Hypocalcaemia [Unknown]
  - Hyponatraemia [Unknown]
  - Hypokalaemia [Unknown]

NARRATIVE: CASE EVENT DATE: 20141222
